FAERS Safety Report 10342914 (Version 1)
Quarter: 2014Q3

REPORT INFORMATION
  Report Type: Spontaneous
  Country: FR (occurrence: FR)
  Receive Date: 20140725
  Receipt Date: 20140725
  Transmission Date: 20150326
  Serious: Yes (Other)
  Sender: FDA-Public Use
  Company Number: FR-PFIZER INC-2014202116

PATIENT
  Age: 72 Year
  Sex: Male

DRUGS (11)
  1. OMEXEL [Suspect]
     Active Substance: TAMSULOSIN HYDROCHLORIDE
     Route: 048
  2. MYSOLINE [Suspect]
     Active Substance: PRIMIDONE
     Dosage: 250 MG, 2X/DAY (ONE TABLET MORNING AND EVENING)
     Route: 048
     Dates: start: 201307, end: 201402
  3. METEOXANE [Concomitant]
     Active Substance: AMOBARBITAL\BELLADONNA LEAF\DIMETHICONE\ERGOTAMINE TARTRATE
     Dosage: UNK
  4. VALDOXAN [Suspect]
     Active Substance: AGOMELATINE
     Dosage: 50 MG, 1X/DAY (2 TABLETS IN THE EVENING)
     Route: 048
     Dates: start: 20120702, end: 201402
  5. EPITOMAX [Suspect]
     Active Substance: TOPIRAMATE
     Dosage: 50 MG, 2X/DAY
     Route: 048
     Dates: start: 201111, end: 201307
  6. FIXICAL VITAMINE D3 [Concomitant]
     Active Substance: CALCIUM CARBONATE\VITAMIN D
     Dosage: UNK
  7. TAHOR [Suspect]
     Active Substance: ATORVASTATIN CALCIUM
     Dosage: UNK
     Route: 048
     Dates: start: 201104, end: 201307
  8. KARDEGIC [Concomitant]
     Active Substance: ASPIRIN LYSINE
     Dosage: UNK
  9. KESTINLYO [Suspect]
     Active Substance: EBASTINE
     Route: 048
  10. EUPHYTOSE [Suspect]
     Active Substance: HERBALS
     Route: 048
  11. TOPALGIC [Concomitant]
     Active Substance: TRAMADOL
     Dosage: UNK

REACTIONS (3)
  - Asthenia [Unknown]
  - Gamma-glutamyltransferase increased [Unknown]
  - Arteriovenous fistula [Not Recovered/Not Resolved]

NARRATIVE: CASE EVENT DATE: 2013
